FAERS Safety Report 4477004-6 (Version None)
Quarter: 2004Q4

REPORT INFORMATION
  Report Type: 
  Country: None (occurrence: None)
  Receive Date: 20041013
  Receipt Date: 20040928
  Transmission Date: 20050328
  Serious: Yes (Death)
  Sender: FDA-Public Use
  Company Number: FR_040904894

PATIENT
  Age: 54 Year
  Sex: Male

DRUGS (1)
  1. PROZAC [Suspect]
     Dosage: 40 MG DAY
     Route: 048

REACTIONS (1)
  - COMPLETED SUICIDE [None]
